FAERS Safety Report 12961319 (Version 2)
Quarter: 2016Q4

REPORT INFORMATION
  Report Type: Spontaneous
  Country: US (occurrence: US)
  Receive Date: 20161121
  Receipt Date: 20161206
  Transmission Date: 20170207
  Serious: Yes (Life-Threatening, Other)
  Sender: FDA-Public Use
  Company Number: US-PFIZER INC-2016540802

PATIENT
  Age: 28 Year
  Sex: Female

DRUGS (3)
  1. FLUOROURACIL. [Suspect]
     Active Substance: FLUOROURACIL
     Indication: METASTATIC GASTRIC CANCER
     Dosage: FIRST CYCLE, FOLLOWED BY THE SECOND CYCLE AFTER 2 WEEKS
  2. IRINOTECAN HCL [Suspect]
     Active Substance: IRINOTECAN HYDROCHLORIDE
     Indication: METASTATIC GASTRIC CANCER
     Dosage: FIRST CYCLE, FOLLOWED BY THE SECOND CYCLE AFTER 2 WEEKS
  3. FOLINIC ACID [Suspect]
     Active Substance: LEUCOVORIN
     Indication: METASTATIC GASTRIC CANCER
     Dosage: FIRST CYCLE, FOLLOWED BY THE SECOND CYCLE AFTER 2 WEEKS

REACTIONS (1)
  - Posterior reversible encephalopathy syndrome [Unknown]
